FAERS Safety Report 4915197-4 (Version None)
Quarter: 2006Q1

REPORT INFORMATION
  Report Type: 
  Country: None (occurrence: None)
  Receive Date: 20060216
  Receipt Date: 20060216
  Transmission Date: 20060701
  Serious: Yes (Hospitalization)
  Sender: FDA-Public Use
  Company Number: None

PATIENT
  Sex: Male
  Weight: 98.8842 kg

DRUGS (3)
  1. AMOXICILLIN [Suspect]
     Indication: ANTI-INFECTIVE THERAPY
     Dosage: PO, PRIOR TO ADMISSION
     Route: 048
  2. TRICOR [Concomitant]
  3. NIASPAN [Concomitant]

REACTIONS (3)
  - ERYTHEMA [None]
  - PRURITUS [None]
  - URTICARIA [None]
